FAERS Safety Report 8857400 (Version 2)
Quarter: 2012Q4

REPORT INFORMATION
  Report Type: 
  Country: US (occurrence: US)
  Receive Date: 20121024
  Receipt Date: 20121123
  Transmission Date: 20130627
  Serious: Yes (Other)
  Sender: FDA-Public Use
  Company Number: US-PFIZER INC-2012263962

PATIENT
  Age: 57 Year
  Sex: Male
  Weight: 81.6 kg

DRUGS (2)
  1. NEURONTIN [Suspect]
     Indication: NEUROPATHY PERIPHERAL
     Dosage: UNK
     Route: 048
     Dates: start: 2011, end: 2011
  2. AMBIEN [Concomitant]
     Indication: SLEEP PROBLEM
     Dosage: unknown dose as needed by splitting 5 mg tablets into half
     Route: 048

REACTIONS (4)
  - Suicidal ideation [Recovered/Resolved]
  - Psychiatric symptom [Recovered/Resolved]
  - Feeling abnormal [Recovered/Resolved]
  - Pain in extremity [Recovered/Resolved]
